FAERS Safety Report 7407900-9 (Version None)
Quarter: 2011Q2

REPORT INFORMATION
  Report Type: 
  Country: None (occurrence: None)
  Receive Date: 20110412
  Receipt Date: 20110407
  Transmission Date: 20111010
  Serious: Yes (Other)
  Sender: FDA-Public Use
  Company Number: US-PFIZER INC-2011071249

PATIENT
  Sex: Female
  Weight: 62.585 kg

DRUGS (3)
  1. PRISTIQ [Suspect]
     Indication: DISTURBANCE IN ATTENTION
     Dosage: 50 MG, 1X/DAY
     Route: 048
     Dates: start: 20110201
  2. CELEBREX [Concomitant]
     Indication: ANTIINFLAMMATORY THERAPY
     Dosage: 200 MG, UNK
     Route: 048
  3. NEXIUM [Concomitant]
     Dosage: 40 MG, UNK
     Route: 048

REACTIONS (7)
  - HYPERTENSION [None]
  - MOOD ALTERED [None]
  - OBSESSIVE THOUGHTS [None]
  - ABDOMINAL DISTENSION [None]
  - CONSTIPATION [None]
  - DIZZINESS [None]
  - HEADACHE [None]
